FAERS Safety Report 10152500 (Version 1)
Quarter: 2014Q2

REPORT INFORMATION
  Report Type: Spontaneous
  Country: KR (occurrence: None)
  Receive Date: 20140501
  Receipt Date: 20140501
  Transmission Date: 20141212
  Serious: Yes (Hospitalization)
  Sender: FDA-Public Use
  Company Number: DEP_02036_2014

PATIENT
  Age: 73 Year
  Sex: Male

DRUGS (1)
  1. DICLOFENAC SODIUM (DICLOFENAC SODIUM) [Suspect]
     Indication: BACK PAIN
     Dosage: THREE TIMES A WEEK FOR ONE MONTH INTRAMUSCULAR?
     Route: 030

REACTIONS (6)
  - Musculoskeletal pain [None]
  - Injection site pain [None]
  - Injection site erythema [None]
  - Pseudomonas infection [None]
  - Embolia cutis medicamentosa [None]
  - Dry gangrene [None]
